FAERS Safety Report 4445236-9 (Version None)
Quarter: 2004Q3

REPORT INFORMATION
  Report Type: 
  Country: None (occurrence: None)
  Receive Date: 20040819
  Receipt Date: 20040412
  Transmission Date: 20050211
  Serious: Yes (Other)
  Sender: FDA-Public Use
  Company Number: 2004024971

PATIENT
  Age: 54 Year
  Sex: Male
  Weight: 113.3993 kg

DRUGS (5)
  1. NORVASC [Suspect]
     Indication: HYPERTENSION
     Dosage: 10 MG, DAILY, ORAL
     Route: 048
  2. TIKOSYN [Suspect]
     Indication: ATRIAL FIBRILLATION
     Dosage: 1000 MCG, BID, ORAL
     Route: 048
     Dates: start: 20040302
  3. ATENOLOL [Concomitant]
  4. WARFARIN SODIUM [Concomitant]
  5. CHLORTALIDONE [Concomitant]

REACTIONS (3)
  - ATRIAL FIBRILLATION [None]
  - DRUG INTERACTION [None]
  - GASTROOESOPHAGEAL REFLUX DISEASE [None]
